FAERS Safety Report 12459184 (Version 1)
Quarter: 2016Q2

REPORT INFORMATION
  Report Type: Spontaneous
  Country: FR (occurrence: FR)
  Receive Date: 20160613
  Receipt Date: 20160613
  Transmission Date: 20160815
  Serious: Yes (Life-Threatening, Other)
  Sender: FDA-Public Use
  Company Number: FR-ELI_LILLY_AND_COMPANY-FR201606002124

PATIENT
  Age: 39 Year
  Sex: Female

DRUGS (4)
  1. ABILIFY [Concomitant]
     Active Substance: ARIPIPRAZOLE
     Route: 065
  2. LEVOTHYROX [Concomitant]
     Active Substance: LEVOTHYROXINE
     Route: 065
  3. PROZAC [Suspect]
     Active Substance: FLUOXETINE HYDROCHLORIDE
     Indication: DEPRESSION
     Dosage: 20 MG, UNKNOWN
     Route: 048
     Dates: end: 20160304
  4. ANAFRANIL [Suspect]
     Active Substance: CLOMIPRAMINE HYDROCHLORIDE
     Indication: DEPRESSION
     Dosage: 75 MG, UNKNOWN
     Route: 048
     Dates: end: 20160304

REACTIONS (16)
  - Cardio-respiratory arrest [Unknown]
  - Deep vein thrombosis [Unknown]
  - Aspiration [Unknown]
  - Shock haemorrhagic [Unknown]
  - Intestinal ischaemia [Unknown]
  - Hypoxia [Unknown]
  - Paraesthesia [Unknown]
  - Cardio-respiratory arrest [Recovered/Resolved with Sequelae]
  - Cardio-respiratory arrest [Recovered/Resolved]
  - Haemorrhagic stroke [Unknown]
  - Anterograde amnesia [Unknown]
  - Stenosis [Unknown]
  - Abdominal compartment syndrome [Unknown]
  - Ventricular fibrillation [Recovered/Resolved with Sequelae]
  - Sepsis [Unknown]
  - Hypothermia [Unknown]

NARRATIVE: CASE EVENT DATE: 20160304
